FAERS Safety Report 11176134 (Version 1)
Quarter: 2015Q2

REPORT INFORMATION
  Report Type: Spontaneous
  Country: UY (occurrence: UY)
  Receive Date: 20150609
  Receipt Date: 20150609
  Transmission Date: 20150821
  Serious: Yes (Other)
  Sender: FDA-Public Use
  Company Number: PHHY2015UY067236

PATIENT
  Age: 54 Year
  Sex: Female

DRUGS (2)
  1. MYCOPHENOLATE MOFETIL. [Suspect]
     Active Substance: MYCOPHENOLATE MOFETIL
     Indication: PEMPHIGUS
     Dosage: 2 G, QD
     Route: 048
  2. PREDNISONE. [Suspect]
     Active Substance: PREDNISONE
     Indication: PEMPHIGUS
     Dosage: 50 MG, QD
     Route: 048

REACTIONS (5)
  - Panniculitis [Recovering/Resolving]
  - Histoplasmosis [Recovering/Resolving]
  - Pyrexia [Recovering/Resolving]
  - Lymphangitis [Recovering/Resolving]
  - Lymphadenopathy [Recovering/Resolving]
